FAERS Safety Report 17298010 (Version 2)
Quarter: 2020Q1

REPORT INFORMATION
  Report Type: Spontaneous
  Country: ES (occurrence: ES)
  Receive Date: 20200121
  Receipt Date: 20200204
  Transmission Date: 20200409
  Serious: Yes (Other)
  Sender: FDA-Public Use
  Company Number: ES-MYLANLABS-2020M1005346

PATIENT
  Age: 36 Year
  Sex: Female

DRUGS (3)
  1. TOPIRAMATE. [Suspect]
     Active Substance: TOPIRAMATE
     Indication: IDIOPATHIC INTRACRANIAL HYPERTENSION
     Dosage: UNK
  2. ACETAZOLAMIDE. [Concomitant]
     Active Substance: ACETAZOLAMIDE
     Indication: IDIOPATHIC INTRACRANIAL HYPERTENSION
     Dosage: UNK, Q8H, 3 TIMES A DAY
  3. EPLERENONE. [Concomitant]
     Active Substance: EPLERENONE
     Indication: CHORIORETINOPATHY
     Dosage: 50 MG PER DAY

REACTIONS (2)
  - Macular detachment [Recovered/Resolved]
  - Retinal detachment [Recovered/Resolved]
